FAERS Safety Report 7635267-X (Version None)
Quarter: 2011Q3

REPORT INFORMATION
  Report Type: 
  Country: None (occurrence: None)
  Receive Date: 20110718
  Receipt Date: 20110620
  Transmission Date: 20111222
  Serious: Yes (Death, Hospitalization)
  Sender: FDA-Public Use
  Company Number: AUR-APL-2011-03558

PATIENT
  Age: 84 Year
  Sex: Male

DRUGS (9)
  1. AMLODIPINE [Concomitant]
  2. AMOXICILLIN [Suspect]
     Indication: PRODUCT USED FOR UNKNOWN INDICATION
     Dosage: 1500 MG (500 MG, 3 IN 1 D), ORAL
     Route: 048
     Dates: start: 20110604, end: 20110606
  3. AMOXICILLIN AND CLAVULANIC ACID (AMOXICILLIN, CLAVULANIC ACID) [Suspect]
     Indication: CELLULITIS
     Dosage: 1875 MG (625 MG, 3 IN 1 D), ORAL
     Route: 048
     Dates: start: 20110519, end: 20110526
  4. FLUCONAZOLE [Concomitant]
  5. LISINOPRIL [Concomitant]
  6. COLCHICINE [Concomitant]
  7. LANSOPRAZOLE [Concomitant]
  8. ALLOPURINOL [Suspect]
     Indication: GOUT
     Dosage: 100 MG (100 MG, 1 IN 1 ), ORAL
     Route: 048
     Dates: start: 20110519, end: 20110606
  9. SIMVASTATIN [Concomitant]

REACTIONS (10)
  - EXTRAVASATION BLOOD [None]
  - SKIN OEDEMA [None]
  - PARAKERATOSIS [None]
  - DRUG HYPERSENSITIVITY [None]
  - DRUG ERUPTION [None]
  - ERYTHEMA [None]
  - RASH GENERALISED [None]
  - RASH MACULO-PAPULAR [None]
  - DERMATITIS [None]
  - RENAL FAILURE ACUTE [None]
